FAERS Safety Report 4515270-9 (Version None)
Quarter: 2004Q4

REPORT INFORMATION
  Report Type: 
  Country: None (occurrence: None)
  Receive Date: 20041130
  Receipt Date: 20041130
  Transmission Date: 20050328
  Serious: Yes (Hospitalization)
  Sender: FDA-Public Use
  Company Number: None

PATIENT
  Age: 66 Year
  Sex: Female
  Weight: 67 kg

DRUGS (1)
  1. ALDARA [Suspect]
     Indication: BASAL CELL CARCINOMA
     Dosage: TOPICAL
     Route: 061
     Dates: start: 20040901, end: 20040914

REACTIONS (4)
  - INFLUENZA LIKE ILLNESS [None]
  - NAUSEA [None]
  - SYNCOPE [None]
  - VOMITING [None]
